FAERS Safety Report 9163041 (Version 1)
Quarter: 2013Q1

REPORT INFORMATION
  Report Type: Spontaneous
  Country: US (occurrence: None)
  Receive Date: 20130313
  Receipt Date: 20130313
  Transmission Date: 20140127
  Serious: Yes (Other)
  Sender: FDA-Public Use
  Company Number: None

PATIENT
  Age: 26 Year
  Sex: Male
  Weight: 61.24 kg

DRUGS (1)
  1. DR. PAUL^S PIGGY PASTE GEL [Suspect]
     Dosage: AT LEAST TWO HOURS A DAY EVERY DAY TOP
     Dates: start: 20130301, end: 20130302

REACTIONS (1)
  - Rash erythematous [None]
